FAERS Safety Report 6782147-8 (Version None)
Quarter: 2010Q2

REPORT INFORMATION
  Report Type: 
  Country: None (occurrence: None)
  Receive Date: 20100621
  Receipt Date: 20100609
  Transmission Date: 20101027
  Serious: Yes (Other)
  Sender: FDA-Public Use
  Company Number: GB-PFIZER INC-2010071998

PATIENT
  Age: 21 Year
  Sex: Female
  Weight: 82 kg

DRUGS (2)
  1. CHAMPIX [Suspect]
     Indication: SMOKING CESSATION THERAPY
     Dosage: 1 MG, UNK
     Route: 048
     Dates: start: 20100403, end: 20100526
  2. DICLOFENAC [Concomitant]
     Indication: BACK PAIN
     Dosage: 75 MG, UNK
     Route: 048
     Dates: start: 20100128, end: 20100205

REACTIONS (2)
  - ANGIOEDEMA [None]
  - SUNBURN [None]
